FAERS Safety Report 6972607-9 (Version None)
Quarter: 2010Q3

REPORT INFORMATION
  Report Type: 
  Country: None (occurrence: None)
  Receive Date: 20100909
  Receipt Date: 20100628
  Transmission Date: 20110219
  Serious: Yes (Death, Life-Threatening, Other)
  Sender: FDA-Public Use
  Company Number: US-BAYER-201038484GPV

PATIENT
  Age: 63 Year
  Sex: Female
  Weight: 74 kg

DRUGS (13)
  1. ASPIRIN [Suspect]
     Indication: CHEST PAIN
     Route: 048
  2. ASPIRIN [Suspect]
  3. LOVENOX [Suspect]
     Indication: ATRIAL FLUTTER
     Dosage: UNIT DOSE: 80 MG
     Route: 058
  4. METOPROLOL TARTRATE [Concomitant]
  5. SIMVASTATIN [Concomitant]
  6. LISINOPRIL [Concomitant]
  7. PIPERACILLIN AND TAZOBACTAM [Concomitant]
     Indication: URINARY TRACT INFECTION
  8. PHYTONADIONE [Concomitant]
     Route: 042
  9. WARFARIN SODIUM [Concomitant]
  10. RED BLOOD CELLS [Concomitant]
     Dosage: 4 UNITS
  11. PLATELETS [Concomitant]
     Dosage: 12 UNITS
  12. PROTAMINE SULFATE [Concomitant]
     Route: 042
  13. VITAMIN K TAB [Concomitant]

REACTIONS (4)
  - CARDIO-RESPIRATORY ARREST [None]
  - HYPOTENSION [None]
  - RETROPERITONEAL HAEMATOMA [None]
  - TACHYCARDIA [None]
